FAERS Safety Report 11371745 (Version 1)
Quarter: 2015Q3

REPORT INFORMATION
  Report Type: Other
  Country: DE (occurrence: DE)
  Receive Date: 20150812
  Receipt Date: 20150812
  Transmission Date: 20151125
  Serious: Yes (Hospitalization)
  Sender: FDA-Public Use
  Company Number: DE-MYLANLABS-2015M1026349

PATIENT

DRUGS (11)
  1. CITALOPRAM [Interacting]
     Active Substance: CITALOPRAM HYDROBROMIDE
     Dosage: 20
     Dates: start: 20100327, end: 20100329
  2. ELONTRIL [Interacting]
     Active Substance: BUPROPION HYDROCHLORIDE
     Dosage: 300
     Dates: start: 20100420, end: 20100506
  3. ELONTRIL [Interacting]
     Active Substance: BUPROPION HYDROCHLORIDE
     Dosage: 150
     Dates: start: 20100507, end: 20100515
  4. ERGENYL CHRONO [Concomitant]
     Active Substance: VALPROIC ACID
     Dosage: 450
     Dates: start: 20100515, end: 20100517
  5. CITALOPRAM [Interacting]
     Active Substance: CITALOPRAM HYDROBROMIDE
     Dosage: 10
     Dates: start: 20100330, end: 20100331
  6. ELONTRIL [Interacting]
     Active Substance: BUPROPION HYDROCHLORIDE
     Dosage: 150
     Dates: start: 20100406, end: 20100419
  7. ERGENYL CHRONO [Concomitant]
     Active Substance: VALPROIC ACID
     Dosage: 600
     Dates: start: 20100518
  8. JODID [Concomitant]
     Active Substance: IODINE
     Dosage: 0.1
     Dates: start: 20100414
  9. CITALOPRAM [Suspect]
     Active Substance: CITALOPRAM HYDROBROMIDE
     Dosage: 40
     Dates: start: 20100325, end: 20100326
  10. ERGENYL CHRONO [Concomitant]
     Active Substance: VALPROIC ACID
     Dosage: 150
     Dates: start: 20100510, end: 20100512
  11. ERGENYL CHRONO [Concomitant]
     Active Substance: VALPROIC ACID
     Dosage: 300
     Dates: start: 20100513, end: 20100514

REACTIONS (4)
  - Breast pain [Recovered/Resolved]
  - Metrorrhagia [Recovered/Resolved]
  - Abdominal pain [Recovered/Resolved]
  - Breast swelling [Recovered/Resolved]

NARRATIVE: CASE EVENT DATE: 20100415
